FAERS Safety Report 16845620 (Version 3)
Quarter: 2019Q3

REPORT INFORMATION
  Report Type: Spontaneous
  Country: JP (occurrence: JP)
  Receive Date: 20190924
  Receipt Date: 20190930
  Transmission Date: 20191005
  Serious: Yes (Other)
  Sender: FDA-Public Use
  Company Number: JP-PFIZER INC-2019398758

PATIENT
  Age: 2 Month
  Sex: Female
  Weight: 2.72 kg

DRUGS (4)
  1. FLECAINIDE ACETATE. [Suspect]
     Active Substance: FLECAINIDE ACETATE
     Indication: WOLFF-PARKINSON-WHITE SYNDROME
     Dosage: 3 MG/KG
  2. AMIODARONE HCL [Suspect]
     Active Substance: AMIODARONE HYDROCHLORIDE
     Indication: WOLFF-PARKINSON-WHITE SYNDROME
     Dosage: 10 MG/KG
  3. DIGOXIN. [Suspect]
     Active Substance: DIGOXIN
     Indication: WOLFF-PARKINSON-WHITE SYNDROME
     Dosage: 0.01 MG/KG
  4. BISOPROLOL [Concomitant]
     Active Substance: BISOPROLOL
     Dosage: UNK

REACTIONS (3)
  - Product use issue [Unknown]
  - Off label use [Unknown]
  - Left ventricular dysfunction [Unknown]
